FAERS Safety Report 13977606 (Version 2)
Quarter: 2017Q3

REPORT INFORMATION
  Report Type: Report from Study
  Country: US (occurrence: US)
  Receive Date: 20170915
  Receipt Date: 20170925
  Transmission Date: 20171128
  Serious: Yes (Hospitalization, Other)
  Sender: FDA-Public Use
  Company Number: PHHO2017US012109

PATIENT
  Age: 11 Year
  Sex: Male
  Weight: 62.3 kg

DRUGS (1)
  1. KYMRIAH [Suspect]
     Active Substance: TISAGENLECLEUCEL
     Indication: ACUTE LYMPHOCYTIC LEUKAEMIA
     Dosage: 1.4776 X 10^8 TRANSDUCED CELLS
     Route: 042
     Dates: start: 20170408, end: 20170408

REACTIONS (4)
  - Neutropenia [Recovered/Resolved]
  - Cellulitis of male external genital organ [Recovering/Resolving]
  - Pyrexia [Recovered/Resolved]
  - Eosinophilia [Not Recovered/Not Resolved]

NARRATIVE: CASE EVENT DATE: 20170814
